FAERS Safety Report 5739593-0 (Version None)
Quarter: 2008Q2

REPORT INFORMATION
  Report Type: 
  Country: None (occurrence: None)
  Receive Date: 20080515
  Receipt Date: 20080507
  Transmission Date: 20081010
  Serious: Yes (Hospitalization)
  Sender: FDA-Public Use
  Company Number: GB-AMGEN-US270086

PATIENT
  Sex: Male

DRUGS (15)
  1. ENBREL [Suspect]
     Indication: DRUG USE FOR UNKNOWN INDICATION
     Route: 058
     Dates: end: 20080301
  2. ACETYLSALICYLIC ACID SRT [Concomitant]
     Route: 048
  3. CALCIUM CARBONATE [Concomitant]
     Route: 048
  4. DICLOFENAC [Concomitant]
     Route: 048
  5. DIPYRIDAMOLE [Concomitant]
     Route: 048
  6. NICOTINE [Concomitant]
     Route: 061
  7. OMEPRAZOLE [Concomitant]
     Dates: start: 20080301
  8. ACETAMINOPHEN [Concomitant]
     Indication: PAIN
     Route: 048
  9. SIMVASTATIN [Concomitant]
     Route: 048
  10. THEOPHYLLINE [Concomitant]
     Dosage: 200 MG FREQUENCY UNKNOWN
     Route: 065
  11. CODEINE SUL TAB [Concomitant]
     Indication: PAIN
     Dosage: 30 - 60 MG EVERY 4 TO 6 HOURS AS REQUIRED
     Route: 048
  12. SALBUTAMOL [Concomitant]
     Dosage: 100 UG AS NEEDED
     Route: 055
  13. MANEVAC [Concomitant]
     Route: 048
  14. CELLUVISC [Concomitant]
  15. ALENDRONIC ACID [Concomitant]
     Route: 048

REACTIONS (6)
  - BIFASCICULAR BLOCK [None]
  - CELLULITIS [None]
  - LACUNAR INFARCTION [None]
  - PULMONARY GRANULOMA [None]
  - SEPSIS [None]
  - SUPRAVENTRICULAR TACHYCARDIA [None]
